FAERS Safety Report 9942939 (Version 1)
Quarter: 2014Q1

REPORT INFORMATION
  Report Type: Report from Study
  Country: US (occurrence: US)
  Receive Date: 20140303
  Receipt Date: 20140303
  Transmission Date: 20141002
  Serious: No
  Sender: FDA-Public Use
  Company Number: US-ABBVIE-13P-163-1047752-00

PATIENT
  Sex: Male

DRUGS (2)
  1. HUMIRA [Suspect]
     Indication: COLITIS ULCERATIVE
     Dosage: DAY 1 LOADING DOSE
     Route: 058
     Dates: start: 20130116, end: 20130116
  2. HUMIRA [Suspect]

REACTIONS (2)
  - Eye pain [Unknown]
  - Migraine [Unknown]
